FAERS Safety Report 4530612-6 (Version None)
Quarter: 2004Q4

REPORT INFORMATION
  Report Type: 
  Country: None (occurrence: None)
  Receive Date: 20041217
  Receipt Date: 20041217
  Transmission Date: 20050328
  Serious: Yes (Hospitalization)
  Sender: FDA-Public Use
  Company Number: None

PATIENT
  Age: 43 Year
  Sex: Female
  Weight: 54.7038 kg

DRUGS (7)
  1. FLUOROURACIL [Suspect]
     Indication: COLON CANCER
     Dosage: 835MG X 4 DAYS INTRAVENOUS
     Route: 042
     Dates: start: 20040712, end: 20041029
  2. CISPLATIN [Suspect]
     Indication: COLON CANCER
     Dosage: 125.25 MG  X 1 DAY INTRAVENOUS
     Route: 042
  3. METHADONE HCL [Concomitant]
  4. DEMEROL [Concomitant]
  5. XANAX [Concomitant]
  6. COMPAZINE [Concomitant]
  7. ATIVAN [Concomitant]

REACTIONS (5)
  - ARTHRALGIA [None]
  - DEHYDRATION [None]
  - MYALGIA [None]
  - PROCTALGIA [None]
  - SINUS BRADYCARDIA [None]
